FAERS Safety Report 10640821 (Version 4)
Quarter: 2015Q1

REPORT INFORMATION
  Report Type: Spontaneous
  Country: JP (occurrence: JP)
  Receive Date: 20141209
  Receipt Date: 20150220
  Transmission Date: 20150720
  Serious: Yes (Other)
  Sender: FDA-Public Use
  Company Number: JP-ASTRAZENECA-2014SE47232

PATIENT
  Age: 43 Year
  Sex: Male
  Weight: 93 kg

DRUGS (13)
  1. PRIMPERAN [Suspect]
     Active Substance: METOCLOPRAMIDE HYDROCHLORIDE
     Indication: BIPOLAR DISORDER
     Route: 048
     Dates: start: 20080908, end: 20081225
  2. CONTOMIN [Concomitant]
     Active Substance: CHLORPROMAZINE
     Dates: start: 20121016
  3. TETRAMIDE [Concomitant]
     Active Substance: MIANSERIN
     Dates: start: 20081006, end: 20130121
  4. PARIET [Concomitant]
     Active Substance: RABEPRAZOLE SODIUM
  5. SULPIRIDE [Suspect]
     Active Substance: SULPIRIDE
     Indication: BIPOLAR DISORDER
     Route: 048
     Dates: start: 200806, end: 20111121
  6. PRAVASTATIN [Concomitant]
     Active Substance: PRAVASTATIN\PRAVASTATIN SODIUM
     Indication: DYSLIPIDAEMIA
     Dates: start: 20120626
  7. SEROQUEL [Suspect]
     Active Substance: QUETIAPINE FUMARATE
     Indication: BIPOLAR DISORDER
     Route: 048
     Dates: start: 20081114, end: 20121015
  8. SULPIRIDE [Suspect]
     Active Substance: SULPIRIDE
     Indication: BIPOLAR DISORDER
     Route: 048
     Dates: start: 20111227, end: 20120924
  9. LAMICTAL [Concomitant]
     Active Substance: LAMOTRIGINE
     Dates: start: 20130219
  10. PRIMPERAN [Suspect]
     Active Substance: METOCLOPRAMIDE HYDROCHLORIDE
     Indication: BIPOLAR DISORDER
     Route: 048
     Dates: start: 20081226, end: 20090122
  11. SULPIRIDE [Suspect]
     Active Substance: SULPIRIDE
     Indication: BIPOLAR DISORDER
     Route: 048
     Dates: start: 20111122, end: 20111226
  12. MEILAX [Concomitant]
     Active Substance: ETHYL LOFLAZEPATE
     Dates: start: 20080602, end: 20081225
  13. PAXIL [Concomitant]
     Active Substance: PAROXETINE HYDROCHLORIDE
     Dates: start: 20081020, end: 20081127

REACTIONS (5)
  - Hepatic steatosis [Not Recovered/Not Resolved]
  - Hyperuricaemia [Recovered/Resolved]
  - Off label use [Unknown]
  - Dyslipidaemia [Recovering/Resolving]
  - Diabetes mellitus [Recovered/Resolved]

NARRATIVE: CASE EVENT DATE: 20080908
